FAERS Safety Report 7946597-6 (Version None)
Quarter: 2011Q4

REPORT INFORMATION
  Report Type: 
  Country: None (occurrence: None)
  Receive Date: 20111129
  Receipt Date: 20111121
  Transmission Date: 20120403
  Serious: Yes (Hospitalization, Other)
  Sender: FDA-Public Use
  Company Number: US-ABBOTT-11P-163-0876096-00

PATIENT
  Sex: Male
  Weight: 106.69 kg

DRUGS (5)
  1. DICLOFENAC SODIUM [Concomitant]
     Indication: BACK PAIN
     Dosage: ONE PATCH
     Route: 062
  2. MULTI-VITAMIN [Concomitant]
     Indication: ROUTINE HEALTH MAINTENANCE
  3. HUMIRA [Suspect]
     Indication: CROHN'S DISEASE
  4. PROZAC [Concomitant]
     Indication: DEPRESSION
  5. HUMIRA [Suspect]
     Indication: ANKYLOSING SPONDYLITIS
     Route: 058
     Dates: start: 20080101, end: 20111001

REACTIONS (4)
  - BACK PAIN [None]
  - MENTAL IMPAIRMENT [None]
  - SLOW RESPONSE TO STIMULI [None]
  - BRAIN NEOPLASM MALIGNANT [None]
